FAERS Safety Report 10587399 (Version 1)
Quarter: 2014Q4

REPORT INFORMATION
  Report Type: Spontaneous
  Country: DE (occurrence: DE)
  Receive Date: 20141117
  Receipt Date: 20141117
  Transmission Date: 20150529
  Serious: Yes (Other)
  Sender: FDA-Public Use
  Company Number: DE-JNJFOC-20141103591

PATIENT

DRUGS (1)
  1. RISPERIDONE. [Suspect]
     Active Substance: RISPERIDONE
     Indication: PSYCHOTIC DISORDER
     Route: 065

REACTIONS (6)
  - Hypoglycaemia [Unknown]
  - Retinopathy [Unknown]
  - Microalbuminuria [Unknown]
  - Body mass index increased [Unknown]
  - Diabetic ketoacidosis [Unknown]
  - Dyslipidaemia [Unknown]
